FAERS Safety Report 9827055 (Version 1)
Quarter: 2014Q1

REPORT INFORMATION
  Report Type: Report from Study
  Country: US (occurrence: US)
  Receive Date: 20140117
  Receipt Date: 20140117
  Transmission Date: 20141002
  Serious: No
  Sender: FDA-Public Use
  Company Number: US-009507513-1401USA003803

PATIENT
  Age: 35 Year
  Sex: Female

DRUGS (1)
  1. SAPHRIS [Suspect]
     Indication: BIPOLAR DISORDER
     Dosage: UNK
     Dates: start: 2013

REACTIONS (4)
  - Sedation [Unknown]
  - Restlessness [Unknown]
  - Paraesthesia oral [Unknown]
  - Hypoaesthesia oral [Unknown]
